FAERS Safety Report 9348971 (Version 1)
Quarter: 2013Q2

REPORT INFORMATION
  Report Type: Spontaneous
  Country: CA (occurrence: CA)
  Receive Date: 20130614
  Receipt Date: 20130614
  Transmission Date: 20140414
  Serious: Yes (Other)
  Sender: FDA-Public Use
  Company Number: CA-GE HEALTHCARE MEDICAL DIAGNOSTICS-OMPQ-PR-1306S-0716

PATIENT
  Age: 72 Year
  Sex: Male

DRUGS (2)
  1. OMNIPAQUE [Suspect]
     Indication: RECTAL CANCER
     Route: 042
     Dates: start: 20130604, end: 20130604
  2. OMNIPAQUE [Suspect]
     Indication: DIAGNOSTIC PROCEDURE

REACTIONS (4)
  - Choking [Recovered/Resolved]
  - Throat irritation [Recovered/Resolved]
  - Tongue disorder [Recovered/Resolved]
  - Dyspnoea [Recovered/Resolved]
